FAERS Safety Report 25330626 (Version 2)
Quarter: 2025Q2

REPORT INFORMATION
  Report Type: Spontaneous
  Country: CA (occurrence: CA)
  Receive Date: 20250519
  Receipt Date: 20250617
  Transmission Date: 20250717
  Serious: Yes (Other)
  Sender: PFIZER
  Company Number: CA-PFIZER INC-202500010754

PATIENT
  Age: 38 Year
  Sex: Female

DRUGS (6)
  1. ABRILADA [Suspect]
     Active Substance: ADALIMUMAB-AFZB
     Indication: Ankylosing spondylitis
     Route: 058
     Dates: start: 20241213
  2. ABRILADA [Suspect]
     Active Substance: ADALIMUMAB-AFZB
     Route: 058
     Dates: start: 20250113
  3. ABRILADA [Suspect]
     Active Substance: ADALIMUMAB-AFZB
     Route: 058
     Dates: start: 20250309
  4. ABRILADA [Suspect]
     Active Substance: ADALIMUMAB-AFZB
     Route: 058
     Dates: start: 2025
  5. CELEBREX [Concomitant]
     Active Substance: CELECOXIB
  6. PENTASA [Concomitant]
     Active Substance: MESALAMINE

REACTIONS (11)
  - Retinal white dots syndrome [Recovering/Resolving]
  - Drug specific antibody present [Unknown]
  - Drug level decreased [Unknown]
  - Tendon rupture [Unknown]
  - Fatigue [Not Recovered/Not Resolved]
  - Psoriasis [Not Recovered/Not Resolved]
  - Pain [Unknown]
  - Ophthalmic migraine [Recovering/Resolving]
  - Eye haemorrhage [Recovering/Resolving]
  - Aura [Recovering/Resolving]
  - Off label use [Unknown]

NARRATIVE: CASE EVENT DATE: 20250414
